FAERS Safety Report 10159983 (Version 3)
Quarter: 2014Q4

REPORT INFORMATION
  Report Type: Report from Study
  Country: ZA (occurrence: ZA)
  Receive Date: 20140508
  Receipt Date: 20141231
  Transmission Date: 20150528
  Serious: Yes (Other)
  Sender: FDA-Public Use
  Company Number: ZA-ABBVIE-11P-143-0885919-03

PATIENT
  Age: 13 Year
  Sex: Male
  Weight: 39.7 kg

DRUGS (9)
  1. MULTIVITAMIN [Concomitant]
     Active Substance: VITAMINS
     Indication: PRODUCT USED FOR UNKNOWN INDICATION
     Dates: start: 20050606
  2. ATAZANAVIR [Concomitant]
     Active Substance: ATAZANAVIR
     Indication: HIV INFECTION
     Route: 048
     Dates: start: 20060413, end: 20121115
  3. LAMIVUDINE. [Concomitant]
     Active Substance: LAMIVUDINE
     Route: 048
  4. ABACAVIR [Concomitant]
     Active Substance: ABACAVIR
     Indication: HIV INFECTION
     Dates: start: 20131016
  5. RITONAVIR ORAL SOLUTION [Suspect]
     Active Substance: RITONAVIR
     Route: 048
     Dates: start: 20131018
  6. STAVUDINE. [Concomitant]
     Active Substance: STAVUDINE
     Indication: HIV INFECTION
     Route: 048
     Dates: start: 20060413, end: 20131016
  7. RITONAVIR ORAL SOLUTION [Suspect]
     Active Substance: RITONAVIR
     Indication: HIV INFECTION
     Route: 048
     Dates: start: 20060413, end: 20121115
  8. ATAZANAVIR [Concomitant]
     Active Substance: ATAZANAVIR
     Route: 048
     Dates: start: 20131018
  9. LAMIVUDINE. [Concomitant]
     Active Substance: LAMIVUDINE
     Indication: HIV INFECTION
     Route: 048
     Dates: start: 20060413, end: 20121115

REACTIONS (5)
  - Blood bilirubin unconjugated increased [Unknown]
  - Proteinuria [Recovered/Resolved]
  - Blood bilirubin increased [Unknown]
  - Blood bilirubin increased [Unknown]
  - Blood bilirubin unconjugated increased [Unknown]

NARRATIVE: CASE EVENT DATE: 20100729
